FAERS Safety Report 7893704-X (Version None)
Quarter: 2011Q4

REPORT INFORMATION
  Report Type: 
  Country: None (occurrence: None)
  Receive Date: 20111104
  Receipt Date: 20111102
  Transmission Date: 20120403
  Serious: Yes (Hospitalization)
  Sender: FDA-Public Use
  Company Number: US-B.I. PHARMACEUTICALS,INC./RIDGEFIELD-2011-BP-25392BP

PATIENT
  Sex: Female

DRUGS (7)
  1. LOVASTATIN [Concomitant]
     Route: 048
  2. AMBIEN [Concomitant]
     Indication: ANXIETY
  3. PLAVIX [Concomitant]
     Route: 048
  4. SPIRIVA [Suspect]
     Indication: CHRONIC OBSTRUCTIVE PULMONARY DISEASE
     Dosage: 18 MCG
     Route: 055
     Dates: start: 20050101
  5. NITROGLYCERIN [Concomitant]
  6. METOPROLOL TARTRATE [Concomitant]
  7. TESSALON PERLS [Concomitant]
     Indication: COUGH
     Route: 048

REACTIONS (5)
  - CARDIAC ENZYMES INCREASED [None]
  - BACK INJURY [None]
  - DYSPNOEA [None]
  - MYOCARDIAL INFARCTION [None]
  - CHRONIC OBSTRUCTIVE PULMONARY DISEASE [None]
